FAERS Safety Report 12069980 (Version 1)
Quarter: 2016Q1

REPORT INFORMATION
  Report Type: Spontaneous
  Country: FR (occurrence: FR)
  Receive Date: 20160211
  Receipt Date: 20160211
  Transmission Date: 20160526
  Serious: Yes (Disabling)
  Sender: FDA-Public Use
  Company Number: FR-SA-2016SA019580

PATIENT
  Age: 67 Year
  Sex: Male

DRUGS (5)
  1. DIAMICRON [Concomitant]
     Active Substance: GLICLAZIDE
     Route: 065
  2. MYTELASE [Suspect]
     Active Substance: AMBENONIUM CHLORIDE
     Indication: MUSCULAR WEAKNESS
     Route: 048
  3. IMUREL [Concomitant]
     Active Substance: AZATHIOPRINE SODIUM
     Route: 065
  4. VESICARE [Suspect]
     Active Substance: SOLIFENACIN SUCCINATE
     Indication: HYPERTONIC BLADDER
     Route: 048
     Dates: start: 201509, end: 201510
  5. SELOKEEN [Concomitant]
     Active Substance: METOPROLOL
     Route: 065

REACTIONS (5)
  - Skin burning sensation [Recovered/Resolved]
  - Dry mouth [Recovered/Resolved]
  - Flushing [Recovered/Resolved]
  - Pruritus [Recovered/Resolved]
  - Myasthenia gravis crisis [Recovered/Resolved]

NARRATIVE: CASE EVENT DATE: 201509
